FAERS Safety Report 14686160 (Version 10)
Quarter: 2019Q1

REPORT INFORMATION
  Report Type: Report from Study
  Country: FR (occurrence: FR)
  Receive Date: 20180327
  Receipt Date: 20190213
  Transmission Date: 20190417
  Serious: Yes (Death, Life-Threatening, Hospitalization, Other)
  Sender: FDA-Public Use
  Company Number: FR-PFIZER INC-2018123630

PATIENT
  Age: 59 Year
  Sex: Male
  Weight: 87 kg

DRUGS (9)
  1. OXALIPLATIN. [Suspect]
     Active Substance: OXALIPLATIN
     Indication: MANTLE CELL LYMPHOMA STAGE III
     Dosage: CYCLIC (R-DHAO) (FOUR CYCLES)
  2. DEXAMETHASONE. [Concomitant]
     Active Substance: DEXAMETHASONE
     Indication: MANTLE CELL LYMPHOMA STAGE III
     Dosage: CYCLIC (R-DHAO)  (FOUR CYCLES)
  3. BICNU [Concomitant]
     Active Substance: CARMUSTINE
     Indication: MANTLE CELL LYMPHOMA STAGE III
     Dosage: D-7 (BEAM) (CONDITIONING REGIMEN, ON DAY 7)
  4. ARACYTINE [Concomitant]
     Active Substance: CYTARABINE
     Indication: MANTLE CELL LYMPHOMA STAGE III
     Dosage: D-6 TO D-3 (BEAM)
  5. CYTARABINE. [Concomitant]
     Active Substance: CYTARABINE
     Indication: MANTLE CELL LYMPHOMA STAGE III
     Dosage: CYCLIC (R-DHAO) (FOUR CYCLES)
  6. MELPHALAN. [Concomitant]
     Active Substance: MELPHALAN
     Indication: MANTLE CELL LYMPHOMA STAGE III
     Dosage: D-2 (BEAM)(CONDITIONING REGIMEN, BEAM 400)FOR 1 DAY
  7. RITUXIMAB. [Concomitant]
     Active Substance: RITUXIMAB
     Indication: MANTLE CELL LYMPHOMA STAGE III
     Dosage: CYCLIC (R-DHAO) (FOUR CYCLES)
  8. CYTARABINE. [Concomitant]
     Active Substance: CYTARABINE
     Dosage: 400 MG/M2, CYCLIC FOR 4 DAYS, (CONDITIONING REGIMEN)
  9. ETOPOPHOS [Concomitant]
     Active Substance: ETOPOSIDE PHOSPHATE
     Indication: MANTLE CELL LYMPHOMA STAGE III
     Dosage: D-6 TO D-3 (BEAM) COMBINED TO CYTARABINE (400 MG/M2) FOR 4 DAYS (CONDITIONING REGIMEN)

REACTIONS (13)
  - Multiple organ dysfunction syndrome [Fatal]
  - Hepatotoxicity [Fatal]
  - Haemodynamic instability [Unknown]
  - Acute respiratory distress syndrome [Unknown]
  - Hepatic ischaemia [Fatal]
  - Lactic acidosis [Unknown]
  - Intestinal ischaemia [Fatal]
  - Arrhythmia [Fatal]
  - Hepatitis fulminant [Fatal]
  - Venoocclusive liver disease [Fatal]
  - Acute kidney injury [Fatal]
  - Hepatocellular injury [Fatal]
  - Renal ischaemia [Fatal]

NARRATIVE: CASE EVENT DATE: 20150324
